FAERS Safety Report 18400834 (Version 4)
Quarter: 2021Q2

REPORT INFORMATION
  Report Type: Spontaneous
  Country: JP (occurrence: JP)
  Receive Date: 20201019
  Receipt Date: 20210415
  Transmission Date: 20210717
  Serious: Yes (Hospitalization)
  Sender: FDA-Public Use
  Company Number: NVSJ2020JP005238

PATIENT
  Age: 63 Year
  Sex: Male
  Weight: 65.9 kg

DRUGS (33)
  1. CERTICAN [Interacting]
     Active Substance: EVEROLIMUS
     Indication: HEART TRANSPLANT
     Dosage: 2.75 MG
     Route: 048
     Dates: start: 20190207
  2. PROGRAF [Concomitant]
     Active Substance: TACROLIMUS
     Indication: HEART TRANSPLANT
     Dosage: UNK
     Route: 048
     Dates: start: 20180811
  3. FUROSEMIDE. [Concomitant]
     Active Substance: FUROSEMIDE
     Indication: OEDEMA DUE TO CARDIAC DISEASE
     Dosage: 20 MG
     Route: 048
  4. FERROUS CITRATE NA [Concomitant]
     Active Substance: SODIUM FERROUS CITRATE
     Indication: PRODUCT USED FOR UNKNOWN INDICATION
     Dosage: UNK
     Route: 065
     Dates: start: 20200528
  5. ALFACALCIDOL [Concomitant]
     Active Substance: ALFACALCIDOL
     Indication: OSTEOPOROSIS
     Dosage: 0.5 UG
     Route: 048
     Dates: start: 20180901
  6. MAGNESIUM OXIDE. [Concomitant]
     Active Substance: MAGNESIUM OXIDE
     Indication: CONSTIPATION
     Dosage: 330 MG
     Route: 048
  7. SODIUM PICOSULFATE [Concomitant]
     Active Substance: SODIUM PICOSULFATE
     Indication: CONSTIPATION
     Dosage: UNK, PRN
     Route: 048
  8. POPIDON [Concomitant]
     Indication: DENTAL DISORDER PROPHYLAXIS
     Dosage: UNK, TID
     Route: 048
     Dates: start: 20180810
  9. HIRUDOID [Concomitant]
     Active Substance: GLYCOSAMINOGLYCANS
     Indication: PRODUCT USED FOR UNKNOWN INDICATION
     Dosage: UNK
     Route: 065
  10. BELSOMRA [Concomitant]
     Active Substance: SUVOREXANT
     Indication: PRODUCT USED FOR UNKNOWN INDICATION
     Dosage: UNK
     Route: 065
     Dates: start: 20200526
  11. CERTICAN [Interacting]
     Active Substance: EVEROLIMUS
     Dosage: 3 MG
     Route: 048
     Dates: start: 20200428
  12. CERTICAN [Interacting]
     Active Substance: EVEROLIMUS
     Dosage: 3.25 MG
     Route: 048
     Dates: start: 20200512
  13. CERTICAN [Interacting]
     Active Substance: EVEROLIMUS
     Dosage: 3.5 MG
     Route: 048
     Dates: start: 20200518
  14. BAKTAR [Concomitant]
     Active Substance: SULFAMETHOXAZOLE\TRIMETHOPRIM
     Indication: PROPHYLAXIS
     Dosage: 1 DF, MONDAY, WEDNESDAY, FRIDAY
     Route: 048
     Dates: start: 20180815
  15. KETOPROFEN. [Concomitant]
     Active Substance: KETOPROFEN
     Indication: BACK PAIN
     Dosage: UNK, PRN
     Route: 062
  16. NOVORAPID [Concomitant]
     Active Substance: INSULIN ASPART
     Indication: TYPE 2 DIABETES MELLITUS
     Dosage: 6 UNITS IN THE MORNING, 8 UNITS IN THE AFTERNOON, 4 UNITS IN THE EVENING
     Route: 058
  17. RISPERIDONE. [Concomitant]
     Active Substance: RISPERIDONE
     Indication: PRODUCT USED FOR UNKNOWN INDICATION
     Dosage: UNK
     Route: 065
     Dates: start: 20200527, end: 20200612
  18. REVOLADE TAB [Suspect]
     Active Substance: ELTROMBOPAG OLAMINE
     Indication: IMMUNE THROMBOCYTOPENIA
     Dosage: 12.5 MG
     Route: 048
     Dates: start: 20200427, end: 20200518
  19. CERTICAN [Interacting]
     Active Substance: EVEROLIMUS
     Dosage: 3 MG
     Route: 048
     Dates: start: 20200731
  20. PITAVASTATIN CA [Concomitant]
     Active Substance: PITAVASTATIN CALCIUM
     Indication: HYPERCHOLESTEROLAEMIA
     Dosage: 2 MG
     Route: 048
  21. AMLODIPINE [Concomitant]
     Active Substance: AMLODIPINE BESYLATE
     Indication: HYPERTENSION
     Dosage: 5 MG
     Route: 048
     Dates: start: 20161124
  22. ENALAPRIL MALEATE. [Concomitant]
     Active Substance: ENALAPRIL MALEATE
     Indication: CARDIAC FAILURE CHRONIC
     Dosage: 2.5 MG
     Route: 048
     Dates: start: 20161125
  23. BAYASPIRIN [Concomitant]
     Active Substance: ASPIRIN
     Indication: THROMBOSIS PROPHYLAXIS
     Dosage: 100 MG
     Route: 048
     Dates: start: 20161122
  24. LANSOPRAZOLE. [Concomitant]
     Active Substance: LANSOPRAZOLE
     Indication: PROPHYLAXIS AGAINST GASTROINTESTINAL ULCER
     Dosage: 15 MG
     Route: 048
     Dates: start: 20161122
  25. SENNOSIDE [Concomitant]
     Active Substance: SENNOSIDES
     Indication: CONSTIPATION
     Dosage: 12 MG
     Route: 048
     Dates: start: 20200604
  26. TRESIBA [Concomitant]
     Active Substance: INSULIN DEGLUDEC
     Indication: TYPE 2 DIABETES MELLITUS
     Dosage: 4 IU
     Route: 058
     Dates: start: 20191107
  27. POVIDONE?IODINE. [Concomitant]
     Active Substance: POVIDONE-IODINE
     Indication: PRODUCT USED FOR UNKNOWN INDICATION
     Dosage: UNK
     Route: 065
  28. NICORANDIL [Concomitant]
     Active Substance: NICORANDIL
     Indication: ANGINA PECTORIS
     Dosage: 5 MG
     Route: 048
     Dates: start: 20180810
  29. ALENDRONATE [Concomitant]
     Active Substance: ALENDRONATE SODIUM
     Indication: OSTEOPOROSIS
     Dosage: 35 MG, TUESDAY
     Route: 048
     Dates: start: 20180908
  30. TRULICITY [Concomitant]
     Active Substance: DULAGLUTIDE
     Indication: TYPE 2 DIABETES MELLITUS
     Dosage: UNK
     Route: 058
     Dates: start: 20180105
  31. RISPERIDONE. [Concomitant]
     Active Substance: RISPERIDONE
     Indication: PRODUCT USED FOR UNKNOWN INDICATION
     Dosage: UNK
     Route: 065
     Dates: start: 20200613
  32. CERTICAN [Interacting]
     Active Substance: EVEROLIMUS
     Dosage: 3.25 MG
     Route: 048
     Dates: start: 20200520
  33. REPATHA [Concomitant]
     Active Substance: EVOLOCUMAB
     Indication: HYPERCHOLESTEROLAEMIA
     Dosage: 420 MG, QMO
     Route: 058
     Dates: start: 20191107

REACTIONS (14)
  - Immune thrombocytopenia [Recovered/Resolved]
  - Anaemia [Unknown]
  - Internal haemorrhage [Unknown]
  - Thrombocytopenia [Unknown]
  - Drug interaction [Unknown]
  - Pancytopenia [Recovered/Resolved]
  - Hyperglycaemia [Recovered/Resolved]
  - Muscle spasms [Not Recovered/Not Resolved]
  - Drug level decreased [Recovered/Resolved]
  - Granulocytopenia [Unknown]
  - Haemorrhage [Unknown]
  - Neutrophil count decreased [Unknown]
  - Myalgia [Not Recovered/Not Resolved]
  - Immunosuppressant drug level increased [Unknown]

NARRATIVE: CASE EVENT DATE: 20200326
